FAERS Safety Report 6595083-7 (Version None)
Quarter: 2010Q1

REPORT INFORMATION
  Report Type: 
  Country: None (occurrence: None)
  Receive Date: 20100212
  Receipt Date: 20100204
  Transmission Date: 20100710
  Serious: Yes (Hospitalization)
  Sender: FDA-Public Use
  Company Number: 2010SP007202

PATIENT
  Age: 66 Year
  Sex: Female

DRUGS (7)
  1. PEG-INTRON [Suspect]
     Indication: HEPATITIS C
     Dosage: 80 MCG;QW;SC, 40 MCG;QW;SC, SC
     Route: 058
     Dates: start: 20090331, end: 20090611
  2. PEG-INTRON [Suspect]
     Indication: HEPATITIS C
     Dosage: 80 MCG;QW;SC, 40 MCG;QW;SC, SC
     Route: 058
     Dates: start: 20090625, end: 20090907
  3. PEG-INTRON [Suspect]
     Indication: HEPATITIS C
     Dosage: 80 MCG;QW;SC, 40 MCG;QW;SC, SC
     Route: 058
     Dates: start: 20090324
  4. RIBAVIRIN [Suspect]
     Indication: HEPATITIS C
     Dosage: 600 MG;QD;PO, 400 MG;QD;PO, 200 MG;QD;PO, PO
     Route: 048
     Dates: start: 20090410, end: 20090611
  5. RIBAVIRIN [Suspect]
     Indication: HEPATITIS C
     Dosage: 600 MG;QD;PO, 400 MG;QD;PO, 200 MG;QD;PO, PO
     Route: 048
     Dates: start: 20090625, end: 20090907
  6. RIBAVIRIN [Suspect]
     Indication: HEPATITIS C
     Dosage: 600 MG;QD;PO, 400 MG;QD;PO, 200 MG;QD;PO, PO
     Route: 048
     Dates: start: 20090324
  7. RIBAVIRIN [Suspect]
     Indication: HEPATITIS C
     Dosage: 600 MG;QD;PO, 400 MG;QD;PO, 200 MG;QD;PO, PO
     Route: 048
     Dates: start: 20090407

REACTIONS (3)
  - CATARACT [None]
  - HAEMOGLOBIN DECREASED [None]
  - PLATELET COUNT DECREASED [None]
